FAERS Safety Report 7503186-5 (Version None)
Quarter: 2011Q2

REPORT INFORMATION
  Report Type: 
  Country: None (occurrence: None)
  Receive Date: 20110525
  Receipt Date: 20101108
  Transmission Date: 20111010
  Serious: No
  Sender: FDA-Public Use
  Company Number: US-NOVEN-ALL1-2010-05363

PATIENT
  Sex: Female
  Weight: 38.549 kg

DRUGS (4)
  1. INTUNIV [Concomitant]
     Dosage: 3 MG, 1X/DAY:QD
     Route: 048
  2. ALLERGY MEDICATION [Concomitant]
     Dosage: UNK MG, AS REQ'D
     Route: 048
  3. DAYTRANA [Suspect]
     Dosage: 20 MG, 1X/DAY:QD
     Route: 062
     Dates: start: 20080101
  4. ZOLOFT [Concomitant]
     Dosage: 25 MG, 1X/DAY:QD
     Route: 048

REACTIONS (3)
  - PRODUCT QUALITY ISSUE [None]
  - APPLICATION SITE ERYTHEMA [None]
  - APPLICATION SITE IRRITATION [None]
